FAERS Safety Report 21531002 (Version 1)
Quarter: 2022Q4

REPORT INFORMATION
  Report Type: Spontaneous
  Country: US (occurrence: US)
  Receive Date: 20221031
  Receipt Date: 20221031
  Transmission Date: 20230113
  Serious: No
  Sender: FDA-Public Use
  Company Number: US-ELI_LILLY_AND_COMPANY-US202210012540

PATIENT
  Sex: Female

DRUGS (1)
  1. MOUNJARO [Suspect]
     Active Substance: TIRZEPATIDE
     Dosage: 2.5 MG, WEEKLY (1/W)
     Route: 058
     Dates: start: 202209

REACTIONS (6)
  - Abdominal distension [Unknown]
  - Headache [Unknown]
  - Palpitations [Unknown]
  - Myalgia [Unknown]
  - Dyspepsia [Unknown]
  - Incorrect dose administered [Unknown]
